FAERS Safety Report 22639110 (Version 1)
Quarter: 2023Q2

REPORT INFORMATION
  Report Type: Spontaneous
  Country: AT (occurrence: AT)
  Receive Date: 20230626
  Receipt Date: 20230626
  Transmission Date: 20230721
  Serious: Yes (Death)
  Sender: FDA-Public Use
  Company Number: AT-drreddys-LIT/AST/23/0168712

PATIENT
  Age: 64 Year
  Sex: Female

DRUGS (3)
  1. AZACITIDINE [Suspect]
     Active Substance: AZACITIDINE
     Indication: Acute myeloid leukaemia
  2. AMPHOTERICIN B [Concomitant]
     Active Substance: AMPHOTERICIN B
     Indication: Mucormycosis
  3. POSACONAZOLE [Concomitant]
     Active Substance: POSACONAZOLE
     Indication: Mucormycosis

REACTIONS (1)
  - Acute myeloid leukaemia [Fatal]
